FAERS Safety Report 4679466-8 (Version None)
Quarter: 2005Q2

REPORT INFORMATION
  Report Type: 
  Country: None (occurrence: None)
  Receive Date: 20050602
  Receipt Date: 20050527
  Transmission Date: 20051028
  Serious: Yes (Death, Hospitalization)
  Sender: FDA-Public Use
  Company Number: FR-MERCK-0505FRA00122

PATIENT
  Age: 95 Year
  Sex: Female

DRUGS (9)
  1. HYZAAR [Suspect]
     Indication: HYPERTENSION
     Route: 048
     Dates: end: 20050301
  2. COZAAR [Concomitant]
     Indication: HYPERTENSION
     Route: 048
     Dates: start: 20050302
  3. FUROSEMIDE [Suspect]
     Indication: HYPERTENSION
     Route: 048
  4. FUROSEMIDE [Suspect]
     Indication: CARDIAC FAILURE CONGESTIVE
     Route: 048
  5. CLOPIDOGREL BISULFATE [Concomitant]
     Indication: THROMBOSIS PROPHYLAXIS
     Route: 048
  6. OMEPRAZOLE [Concomitant]
     Indication: PROPHYLAXIS AGAINST GASTROINTESTINAL ULCER
     Route: 048
  7. TIANEPTINE SODIUM [Concomitant]
     Indication: DEPRESSION
     Route: 048
  8. DOMPERIDONE [Concomitant]
     Indication: NAUSEA
     Route: 048
  9. GINKGO BILOBA EXTRACT [Concomitant]
     Indication: VENOUS INSUFFICIENCY
     Route: 048

REACTIONS (6)
  - APHASIA [None]
  - BALANCE DISORDER [None]
  - DEHYDRATION [None]
  - DIFFICULTY IN WALKING [None]
  - HYPOKALAEMIA [None]
  - NERVOUS SYSTEM DISORDER [None]
